FAERS Safety Report 23535637 (Version 2)
Quarter: 2024Q4

REPORT INFORMATION
  Report Type: Other
  Country: ES (occurrence: ES)
  Receive Date: 20240218
  Receipt Date: 20241102
  Transmission Date: 20250115
  Serious: Yes (Life-Threatening)
  Sender: DENTSPLY
  Company Number: ES-DENTSPLY-2024SCDP000037

PATIENT
  Age: 44 Year
  Sex: Female
  Weight: 73 kg

DRUGS (3)
  1. MEPIVACAINE [Suspect]
     Active Substance: MEPIVACAINE HYDROCHLORIDE
     Indication: Product used for unknown indication
     Dosage: UNK DOSE OF MEPIVACAINE (1909A)
     Dates: start: 20240126, end: 20240126
  2. BETAMETHASONE [Suspect]
     Active Substance: BETAMETHASONE
     Indication: Joint injection
     Dosage: UNK DOSE OF CELESTONE CRONODOSE 12 MG INJECTABLE SUSPENSION/SUSPENSION FOR INJECTION
     Route: 014
     Dates: start: 20240126, end: 20240126
  3. ACETAMINOPHEN [Concomitant]
     Active Substance: ACETAMINOPHEN
     Indication: Product used for unknown indication
     Dosage: UNK DOSE OF PARACETAMOL 1,000 MG TABLET
     Route: 048
     Dates: start: 20231115

REACTIONS (7)
  - Hypertension [Recovered/Resolved]
  - Tachycardia [None]
  - Dyspnoea [Recovered/Resolved]
  - Swelling face [None]
  - Pharyngeal oedema [None]
  - Dizziness [None]
  - Erythema [None]

NARRATIVE: CASE EVENT DATE: 20240126
